FAERS Safety Report 13665312 (Version 1)
Quarter: 2017Q2

REPORT INFORMATION
  Report Type: Spontaneous
  Country: GB (occurrence: GB)
  Receive Date: 20170619
  Receipt Date: 20170619
  Transmission Date: 20170830
  Serious: Yes (Life-Threatening, Hospitalization, Other)
  Sender: FDA-Public Use
  Company Number: PHFR2017GB004736

PATIENT
  Age: 24 Year
  Sex: Female
  Weight: 64 kg

DRUGS (1)
  1. CARBAMAZEPINE. [Suspect]
     Active Substance: CARBAMAZEPINE
     Indication: TRIGEMINAL NEURALGIA
     Dosage: UNK
     Route: 048
     Dates: start: 20170519, end: 20170523

REACTIONS (6)
  - Toxic epidermal necrolysis [Not Recovered/Not Resolved]
  - Rash [Unknown]
  - Eye symptom [Unknown]
  - Skin exfoliation [Unknown]
  - Blister [Unknown]
  - Mucosal ulceration [Unknown]

NARRATIVE: CASE EVENT DATE: 20170522
